FAERS Safety Report 6922779-7 (Version None)
Quarter: 2010Q3

REPORT INFORMATION
  Report Type: 
  Country: None (occurrence: None)
  Receive Date: 20100813
  Receipt Date: 20100813
  Transmission Date: 20110219
  Serious: Yes (Hospitalization)
  Sender: FDA-Public Use
  Company Number: None

PATIENT
  Age: 78 Year
  Sex: Female

DRUGS (2)
  1. SODIUM POLYSTYRENE SULFONATE [Suspect]
     Indication: HYPERKALAEMIA
     Dosage: 60G -30,30- 2 DOSES PO ; 30 G 1 DOSE PO
     Route: 048
     Dates: start: 20060220, end: 20060220
  2. SODIUM POLYSTYRENE SULFONATE [Suspect]
     Indication: HYPERKALAEMIA
     Dosage: 60G -30,30- 2 DOSES PO ; 30 G 1 DOSE PO
     Route: 048
     Dates: start: 20060227, end: 20060227

REACTIONS (6)
  - COLITIS [None]
  - INTESTINAL ISCHAEMIA [None]
  - LARGE INTESTINAL ULCER [None]
  - LOWER GASTROINTESTINAL HAEMORRHAGE [None]
  - PROCTITIS [None]
  - RECTAL ULCER [None]
